FAERS Safety Report 17349856 (Version 1)
Quarter: 2020Q1

REPORT INFORMATION
  Report Type: Other
  Country: CN (occurrence: CN)
  Receive Date: 20200130
  Receipt Date: 20200130
  Transmission Date: 20200409
  Serious: Yes (Other)
  Sender: FDA-Public Use
  Company Number: CN-CSPC OUYI PHARMACEUTICAL CO., LTD.-2079584

PATIENT
  Age: 54 Year
  Sex: Male
  Weight: 60 kg

DRUGS (1)
  1. TRAMADOL HYDROCHLORIDE. [Suspect]
     Active Substance: TRAMADOL HYDROCHLORIDE
     Indication: DISCOMFORT
     Route: 030
     Dates: start: 20190723, end: 20190723

REACTIONS (1)
  - Bradycardia [None]

NARRATIVE: CASE EVENT DATE: 20190723
